FAERS Safety Report 23751222 (Version 2)
Quarter: 2024Q2

REPORT INFORMATION
  Report Type: Spontaneous
  Country: SY (occurrence: SY)
  Receive Date: 20240417
  Receipt Date: 20240419
  Transmission Date: 20240716
  Serious: Yes (Other)
  Sender: FDA-Public Use
  Company Number: None

PATIENT
  Age: 50 Year
  Sex: Male

DRUGS (2)
  1. DICLOFENAC [Suspect]
     Active Substance: DICLOFENAC
     Indication: Ear pain
     Dosage: 50 MILLIGRAM, EVERY 4 HRS (ADMINISTERED 6 TIMES IN A DAY)
     Route: 048
  2. DICLOFENAC [Suspect]
     Active Substance: DICLOFENAC
     Dosage: 300 MILLIGRAM, QD
     Route: 048

REACTIONS (3)
  - Aphthous ulcer [Recovered/Resolved]
  - Self-medication [Unknown]
  - Intentional product misuse [Unknown]
